FAERS Safety Report 8838464 (Version 1)
Quarter: 2012Q4

REPORT INFORMATION
  Report Type: 
  Country: VE (occurrence: VE)
  Receive Date: 20121012
  Receipt Date: 20121012
  Transmission Date: 20130627
  Serious: Yes (Death, Other)
  Sender: FDA-Public Use
  Company Number: PHHY2012VE090638

PATIENT
  Sex: Female

DRUGS (1)
  1. DIOVAN [Suspect]
     Dosage: UNK
     Route: 048
     Dates: start: 2006

REACTIONS (3)
  - Cardiac arrest [Fatal]
  - Endometrial cancer [Unknown]
  - General physical health deterioration [Unknown]
